FAERS Safety Report 9189931 (Version 1)
Quarter: 2013Q1

REPORT INFORMATION
  Report Type: Spontaneous
  Country: NL (occurrence: NL)
  Receive Date: 20130326
  Receipt Date: 20130326
  Transmission Date: 20140127
  Serious: Yes (Hospitalization, Other)
  Sender: FDA-Public Use
  Company Number: NL-AMGEN-NLDSP2013020928

PATIENT
  Age: 72 Year
  Sex: Female
  Weight: 80 kg

DRUGS (3)
  1. ENBREL [Suspect]
     Indication: RHEUMATOID ARTHRITIS
     Dosage: 50 MG, WEEKLY
     Dates: start: 2006
  2. MTX                                /00113802/ [Concomitant]
     Indication: RHEUMATOID ARTHRITIS
     Dosage: 5 MG, WEEKLY
     Dates: start: 2006
  3. PREDNISON [Concomitant]
     Indication: RHEUMATOID ARTHRITIS
     Dosage: 2.5 G, 1X/DAY
     Dates: start: 2006

REACTIONS (3)
  - Cardiac disorder [Unknown]
  - Epilepsy [Unknown]
  - Chest pain [Recovered/Resolved]
